FAERS Safety Report 5623032-4 (Version None)
Quarter: 2008Q1

REPORT INFORMATION
  Report Type: 
  Country: None (occurrence: None)
  Receive Date: 20080212
  Receipt Date: 20080129
  Transmission Date: 20080703
  Serious: Yes (Other)
  Sender: FDA-Public Use
  Company Number: ES-AMGEN-US263526

PATIENT
  Age: 43 Year
  Sex: Female

DRUGS (4)
  1. ENBREL [Suspect]
     Indication: RHEUMATOID ARTHRITIS
     Route: 058
     Dates: start: 20040119, end: 20071122
  2. METHOTREXATE [Concomitant]
     Dosage: UNKNOWN
     Route: 065
  3. DACORTIN [Concomitant]
     Dosage: 5 MG PER DAY
     Route: 065
  4. IDALPREM [Concomitant]
     Dosage: 5 MG PER DAY
     Route: 048

REACTIONS (6)
  - ATAXIA [None]
  - CEREBELLAR SYNDROME [None]
  - CONFUSIONAL STATE [None]
  - HYPERREFLEXIA [None]
  - TREMOR [None]
  - WEIGHT DECREASED [None]
